FAERS Safety Report 12507186 (Version 2)
Quarter: 2016Q3

REPORT INFORMATION
  Report Type: Spontaneous
  Country: PT (occurrence: PT)
  Receive Date: 20160629
  Receipt Date: 20160704
  Transmission Date: 20161109
  Serious: Yes (Other)
  Sender: FDA-Public Use
  Company Number: PT-HORIZON-VIM-0127-2016

PATIENT
  Age: 81 Year
  Sex: Female
  Weight: 70 kg

DRUGS (6)
  1. JANUVIA [Concomitant]
     Active Substance: SITAGLIPTIN PHOSPHATE
     Route: 048
  2. PRAVASTATINA [Concomitant]
     Active Substance: PRAVASTATIN SODIUM
  3. TRENTAL [Concomitant]
     Active Substance: PENTOXIFYLLINE
     Route: 048
  4. VIMOVO [Suspect]
     Active Substance: ESOMEPRAZOLE MAGNESIUM\NAPROXEN
     Indication: PAIN IN EXTREMITY
     Route: 048
     Dates: start: 20160502, end: 20160509
  5. GLICLAZIDA [Concomitant]
     Dosage: 60.0 MG
  6. PERINDOPRIL/INDAPAMIDA [Concomitant]
     Dosage: 4 MG/1.25 MG

REACTIONS (5)
  - Balance disorder [Recovered/Resolved]
  - Malaise [Recovered/Resolved]
  - Urticaria [Recovered/Resolved]
  - Generalised oedema [Recovered/Resolved]
  - Hypoaesthesia [Recovered/Resolved]

NARRATIVE: CASE EVENT DATE: 20160502
